FAERS Safety Report 24287644 (Version 2)
Quarter: 2024Q4

REPORT INFORMATION
  Report Type: Report from Study
  Country: GB (occurrence: GB)
  Receive Date: 20240905
  Receipt Date: 20241105
  Transmission Date: 20250115
  Serious: Yes (Hospitalization)
  Sender: SANDOZ
  Company Number: GB-SANDOZ-SDZ2024GB076366

PATIENT
  Sex: Female

DRUGS (1)
  1. OMNITROPE [Suspect]
     Active Substance: SOMATROPIN
     Indication: Pituitary gonadotropin hyperfunction
     Dosage: 0.80MG
     Route: 058
     Dates: start: 20240726

REACTIONS (8)
  - Hospitalisation [Unknown]
  - Balance disorder [Unknown]
  - Fall [Unknown]
  - Pain in extremity [Unknown]
  - Injection site bruising [Unknown]
  - Contusion [Unknown]
  - Product dispensing issue [Unknown]
  - Product storage error [Unknown]
